FAERS Safety Report 4960444-6 (Version None)
Quarter: 2006Q2

REPORT INFORMATION
  Report Type: 
  Country: None (occurrence: None)
  Receive Date: 20060403
  Receipt Date: 20060328
  Transmission Date: 20061013
  Serious: Yes (Other)
  Sender: FDA-Public Use
  Company Number: US-GLAXOSMITHKLINE-A0599505A

PATIENT
  Age: 56 Year
  Sex: Male

DRUGS (8)
  1. REQUIP [Suspect]
     Indication: RESTLESS LEGS SYNDROME
     Dosage: .5MG PER DAY
     Route: 048
     Dates: start: 20060201, end: 20060201
  2. WELLBUTRIN [Suspect]
     Indication: DRUG USE FOR UNKNOWN INDICATION
     Route: 065
  3. MONOPRIL [Concomitant]
  4. WELLBUTRIN [Concomitant]
  5. PROZAC [Concomitant]
  6. VYTORIN [Concomitant]
  7. PRILOSEC [Concomitant]
  8. KLONOPIN [Concomitant]

REACTIONS (3)
  - ALDOLASE INCREASED [None]
  - BLOOD CREATINE PHOSPHOKINASE INCREASED [None]
  - CONVULSION [None]
